FAERS Safety Report 4426201-4 (Version None)
Quarter: 2004Q3

REPORT INFORMATION
  Report Type: 
  Country: None (occurrence: None)
  Receive Date: 20040811
  Receipt Date: 20040726
  Transmission Date: 20050211
  Serious: Yes (Hospitalization, Other)
  Sender: FDA-Public Use
  Company Number: USA031254365

PATIENT
  Age: 69 Year
  Sex: Female
  Weight: 62 kg

DRUGS (3)
  1. FORTEO [Suspect]
     Indication: OSTEOPOROSIS
     Dosage: 20 UG DAY
     Dates: start: 20031101
  2. EVISTA [Suspect]
     Indication: OSTEOPOROSIS
     Dates: start: 20040101
  3. CALTRATE + D [Concomitant]

REACTIONS (10)
  - ARTHRALGIA [None]
  - BACK PAIN [None]
  - BLOOD CALCIUM INCREASED [None]
  - HEADACHE [None]
  - INCREASED UPPER AIRWAY SECRETION [None]
  - NAUSEA [None]
  - NECK PAIN [None]
  - PHARMACEUTICAL PRODUCT COMPLAINT [None]
  - PULMONARY MASS [None]
  - VOMITING [None]
